FAERS Safety Report 12938989 (Version 1)
Quarter: 2016Q4

REPORT INFORMATION
  Report Type: Report from Study
  Country: None (occurrence: IL)
  Receive Date: 20161115
  Receipt Date: 20161115
  Transmission Date: 20170207
  Serious: Yes (Hospitalization, Other)
  Sender: FDA-Public Use
  Company Number: IL-ABBVIE-16K-082-1754019-00

PATIENT
  Sex: Female

DRUGS (4)
  1. HUMIRA [Suspect]
     Active Substance: ADALIMUMAB
     Route: 058
     Dates: start: 20161018
  2. HUMIRA [Suspect]
     Active Substance: ADALIMUMAB
     Route: 058
     Dates: end: 20130506
  3. IMURAN [Suspect]
     Active Substance: AZATHIOPRINE
     Indication: PRODUCT USED FOR UNKNOWN INDICATION
     Dosage: DAILY DOSE- 25-100MG
     Route: 065
     Dates: start: 200810, end: 201211
  4. HUMIRA [Suspect]
     Active Substance: ADALIMUMAB
     Indication: CROHN^S DISEASE
     Dosage: ABOUT 14 DOSES IN TOTAL
     Route: 058
     Dates: start: 20120423, end: 20121111

REACTIONS (3)
  - Pelvic fluid collection [Unknown]
  - Gastrointestinal infection [Unknown]
  - Ovarian endometrioid carcinoma [Recovered/Resolved]

NARRATIVE: CASE EVENT DATE: 2012
